FAERS Safety Report 4872841-8 (Version None)
Quarter: 2005Q4

REPORT INFORMATION
  Report Type: 
  Country: None (occurrence: None)
  Receive Date: 20051201
  Receipt Date: 20050803
  Transmission Date: 20060501
  Serious: No
  Sender: FDA-Public Use
  Company Number: 2005PV000842

PATIENT
  Age: 37 Year
  Sex: Female
  Weight: 107.0489 kg

DRUGS (24)
  1. BYETTA [Suspect]
     Indication: DIABETES MELLITUS NON-INSULIN-DEPENDENT
     Dosage: 5 MCG; BID; SC
     Route: 058
     Dates: start: 20050802
  2. FLAGYL [Suspect]
     Indication: CLOSTRIDIAL INFECTION
     Dosage: 250 MG; TID; PO
     Route: 048
     Dates: start: 20050727
  3. LANTUS [Concomitant]
  4. HUMALOG [Concomitant]
  5. GLUCOPHAGE [Concomitant]
  6. PREDNISONE [Concomitant]
  7. PRILOSEC [Concomitant]
  8. ALBUTEROL SULFATE AUTOHALER [Concomitant]
  9. PULMICORT [Concomitant]
  10. SEREVENT [Concomitant]
  11. XOPENEX [Concomitant]
  12. NASONEX [Concomitant]
  13. ALLFEN-DM [Concomitant]
  14. HUMABID [Concomitant]
  15. NEURONTIN [Concomitant]
  16. MAGNESIUM [Concomitant]
  17. LOMOTIL [Concomitant]
  18. LASIX [Concomitant]
  19. LEXAPRO [Concomitant]
  20. VICODIN [Concomitant]
  21. MAALOX FAST BLOCKER [Concomitant]
  22. LIDOCAINE [Concomitant]
  23. BENADRYL ^PFIZER WARNER-LAMBERT^ [Concomitant]
  24. NYSTATIN [Concomitant]

REACTIONS (8)
  - BLOOD GLUCOSE DECREASED [None]
  - COLD SWEAT [None]
  - HYPERHIDROSIS [None]
  - IRRITABILITY [None]
  - MENTAL IMPAIRMENT [None]
  - NAUSEA [None]
  - SENSATION OF HEAVINESS [None]
  - VOMITING [None]
